FAERS Safety Report 4428257-1 (Version None)
Quarter: 2004Q3

REPORT INFORMATION
  Report Type: 
  Country: None (occurrence: None)
  Receive Date: 20040813
  Receipt Date: 20040426
  Transmission Date: 20050211
  Serious: Yes (Hospitalization)
  Sender: FDA-Public Use
  Company Number: M2004.1042

PATIENT
  Age: 37 Year
  Sex: Female

DRUGS (7)
  1. AMOXICILLIN [Suspect]
     Indication: LOWER RESPIRATORY TRACT INFECTION
     Dosage: 500MG BD
     Dates: start: 20040105
  2. DEPO-PROVERA [Suspect]
     Indication: CONTRACEPTION
     Dates: start: 20030301, end: 20030101
  3. ERYTHROMYCIN [Suspect]
     Indication: LOWER RESPIRATORY TRACT INFECTION
     Dosage: 500MG QID
  4. CLARITHROMYCIN [Suspect]
     Dosage: 500MG BID
  5. CODEINE PHOSPHATE [Suspect]
     Indication: PAIN
     Dosage: 15MG QID
  6. BENDROFLUAZIDE [Concomitant]
  7. ENALAPRIL [Concomitant]

REACTIONS (5)
  - CONDITION AGGRAVATED [None]
  - PNEUMONIA [None]
  - PULMONARY EMBOLISM [None]
  - UPPER RESPIRATORY TRACT INFECTION [None]
  - VIRAL INFECTION [None]
